FAERS Safety Report 7641688-1 (Version None)
Quarter: 2011Q3

REPORT INFORMATION
  Report Type: 
  Country: None (occurrence: None)
  Receive Date: 20110728
  Receipt Date: 20110720
  Transmission Date: 20111222
  Serious: Yes (Other)
  Sender: FDA-Public Use
  Company Number: IT-GLAXOSMITHKLINE-B0731824A

PATIENT
  Sex: Male

DRUGS (8)
  1. ZITHROMAX [Suspect]
     Indication: PYREXIA
     Dosage: 500MG PER DAY
     Route: 042
     Dates: start: 20110531, end: 20110531
  2. ZYVOX [Suspect]
     Indication: PYREXIA
     Dosage: 1.2G PER DAY
     Route: 042
     Dates: start: 20110514, end: 20110606
  3. LEVOFLOXACIN [Suspect]
     Indication: PYREXIA
     Dosage: 500ML PER DAY
     Route: 042
     Dates: start: 20110526, end: 20110608
  4. MERREM [Suspect]
     Indication: PYREXIA
     Dosage: 3G PER DAY
     Route: 042
     Dates: start: 20110523, end: 20110606
  5. ZOVIRAX [Suspect]
     Indication: PYREXIA
     Dosage: 1.6G PER DAY
     Route: 042
     Dates: start: 20110514, end: 20110606
  6. PIPERACILLIN AND TAZOBACTAM [Concomitant]
     Indication: PYREXIA
     Dosage: 13.5G PER DAY
     Route: 042
     Dates: start: 20110514, end: 20110610
  7. VFEND [Concomitant]
     Dosage: 400MG PER DAY
     Route: 042
     Dates: start: 20110514, end: 20110610
  8. PRILOSEC [Suspect]
     Indication: PROPHYLAXIS
     Dosage: 20MG PER DAY
     Route: 048
     Dates: start: 20110514, end: 20110606

REACTIONS (2)
  - SKIN EXFOLIATION [None]
  - RASH GENERALISED [None]
